FAERS Safety Report 11965477 (Version 1)
Quarter: 2016Q1

REPORT INFORMATION
  Report Type: Spontaneous
  Country: US (occurrence: None)
  Receive Date: 20160125
  Receipt Date: 20160125
  Transmission Date: 20160526
  Serious: Yes (Hospitalization, Congenital Anomaly)
  Sender: FDA-Public Use
  Company Number: None

PATIENT
  Age: 37 Year
  Sex: Female
  Weight: 56.7 kg

DRUGS (1)
  1. ZOLOFT [Suspect]
     Active Substance: SERTRALINE HYDROCHLORIDE
     Indication: DEPRESSION
     Dosage: 2-5 YEAR?100MG - 150MG
     Route: 048

REACTIONS (3)
  - Maternal exposure during pregnancy [None]
  - Anomalous pulmonary venous connection [None]
  - Maternal drugs affecting foetus [None]

NARRATIVE: CASE EVENT DATE: 20151001
